FAERS Safety Report 5493065-X (Version None)
Quarter: 2007Q4

REPORT INFORMATION
  Report Type: 
  Country: None (occurrence: None)
  Receive Date: 20071019
  Receipt Date: 20071018
  Transmission Date: 20080405
  Serious: Yes (Death, Life-Threatening)
  Sender: FDA-Public Use
  Company Number: WAES 0706USA04535

PATIENT
  Age: 25 Year
  Sex: Female

DRUGS (5)
  1. DEXAMETHASONE [Suspect]
     Indication: RHABDOMYOSARCOMA
     Dosage: 40 MG/M[2]/DAILY
  2. CYCLOPHOSPHAMIDE [Suspect]
     Dosage: 2000 MG/M[2]/DAILY
  3. ETOPOSIDE [Suspect]
     Dosage: 400 MG/M[2]/DAILY
  4. CARBOPLATIN [Suspect]
     Dosage: 300 MG/M[2]/DAILY
  5. DACTINOMYCIN [Concomitant]

REACTIONS (7)
  - EWING'S SARCOMA [None]
  - LEUKOPENIA [None]
  - MALIGNANT NEOPLASM PROGRESSION [None]
  - NEUTROPENIA [None]
  - RHABDOMYOSARCOMA [None]
  - STEM CELL TRANSPLANT [None]
  - THROMBOCYTOPENIA [None]
